FAERS Safety Report 8509352-4 (Version None)
Quarter: 2012Q3

REPORT INFORMATION
  Report Type: 
  Country: None (occurrence: None)
  Receive Date: 20120713
  Receipt Date: 20120702
  Transmission Date: 20120928
  Serious: Yes (Hospitalization, Other)
  Sender: FDA-Public Use
  Company Number: CZ-AMGEN-CZESP2012033710

PATIENT
  Age: 38 Year
  Sex: Female

DRUGS (3)
  1. ENBREL [Suspect]
     Indication: PSORIATIC ARTHROPATHY
     Dosage: 50 MG, WEEKLY
     Route: 058
     Dates: start: 20080225
  2. CYCLOSPORINE [Concomitant]
     Dosage: 25 MG, QD
  3. CYCLOSPORINE [Concomitant]
     Dosage: 50 MG, QD

REACTIONS (1)
  - EPILEPSY [None]
